FAERS Safety Report 5244857-3 (Version None)
Quarter: 2007Q1

REPORT INFORMATION
  Report Type: 
  Country: None (occurrence: None)
  Receive Date: 20070221
  Receipt Date: 20070221
  Transmission Date: 20070707
  Serious: No
  Sender: FDA-Public Use
  Company Number: None

PATIENT
  Age: 62 Year
  Sex: Female
  Weight: 63 kg

DRUGS (12)
  1. TUBERCULIN PPD, 5TU/0.1ML, PARKEDALE PHARMACEUTICALS [Suspect]
     Indication: TUBERCULIN TEST
     Dosage: 0.1 UNITS (5TU) ONCE INTRADERMA
     Route: 023
     Dates: start: 20061212
  2. ALBUTEROL SVN [Concomitant]
  3. VALSARTAN [Concomitant]
  4. SIMVASTATIN [Concomitant]
  5. LORATADINE [Concomitant]
  6. GABAPENTIN [Concomitant]
  7. DOXAZOSIN MESYLATE [Concomitant]
  8. CLOPIDOGREL [Concomitant]
  9. COLECOXIB [Concomitant]
  10. GLYBURIDE AND METFORMIN HCL [Concomitant]
  11. LATANOPROST [Concomitant]
  12. CARBOXYMETHYLCELLULOSE [Concomitant]

REACTIONS (3)
  - FALSE POSITIVE TUBERCULOSIS TEST [None]
  - PHARMACEUTICAL PRODUCT COMPLAINT [None]
  - POOR QUALITY DRUG ADMINISTERED [None]
